FAERS Safety Report 11786360 (Version 1)
Quarter: 2015Q4

REPORT INFORMATION
  Report Type: Spontaneous
  Country: GB (occurrence: GB)
  Receive Date: 20151130
  Receipt Date: 20151130
  Transmission Date: 20160305
  Serious: Yes (Life-Threatening, Hospitalization, Other)
  Sender: FDA-Public Use
  Company Number: GB-PFIZER INC-2015403249

PATIENT
  Age: 45 Year
  Sex: Female

DRUGS (1)
  1. DEPO-PROVERA [Suspect]
     Active Substance: MEDROXYPROGESTERONE ACETATE
     Indication: CONTRACEPTION
     Dosage: 150MG/1ML
     Route: 030
     Dates: start: 20141106, end: 20151023

REACTIONS (4)
  - Circulatory collapse [Unknown]
  - Sinus tachycardia [Unknown]
  - Pulmonary embolism [Recovered/Resolved with Sequelae]
  - Cardiomegaly [Unknown]

NARRATIVE: CASE EVENT DATE: 20151103
